FAERS Safety Report 9554277 (Version 1)
Quarter: 2013Q3

REPORT INFORMATION
  Report Type: Spontaneous
  Country: DE (occurrence: None)
  Receive Date: 20130726
  Receipt Date: 20130726
  Transmission Date: 20140515
  Serious: Yes (Hospitalization)
  Sender: FDA-Public Use
  Company Number: E2B_00000806

PATIENT
  Age: 55 Year
  Sex: Female

DRUGS (5)
  1. QUETIAPINE [Suspect]
     Indication: PRODUCT USED FOR UNKNOWN INDICATION
     Route: 048
  2. CLOMIPRAMINE [Suspect]
     Indication: PRODUCT USED FOR UNKNOWN INDICATION
     Route: 048
     Dates: start: 20120716, end: 20120729
  3. PREGABALIN [Concomitant]
  4. LAMOTRIGINE (LAMOTRIGIN) [Concomitant]
  5. LEVOTHYROXINE SODIUM (EUTHYROX) [Concomitant]

REACTIONS (1)
  - Urinary hesitation [None]
